FAERS Safety Report 8031546-5 (Version None)
Quarter: 2012Q1

REPORT INFORMATION
  Report Type: 
  Country: None (occurrence: None)
  Receive Date: 20120109
  Receipt Date: 20120103
  Transmission Date: 20120608
  Serious: Yes (Death, Hospitalization)
  Sender: FDA-Public Use
  Company Number: US-MEDIMMUNE-MEDI-0014332

PATIENT
  Sex: Male
  Weight: 2.98 kg

DRUGS (1)
  1. SYNAGIS [Suspect]
     Dates: start: 20111229, end: 20111229

REACTIONS (1)
  - RESPIRATORY DISTRESS [None]
